FAERS Safety Report 4810377-0 (Version None)
Quarter: 2005Q4

REPORT INFORMATION
  Report Type: 
  Country: None (occurrence: None)
  Receive Date: 20051024
  Receipt Date: 20051007
  Transmission Date: 20060501
  Serious: Yes (Other)
  Sender: FDA-Public Use
  Company Number: 12591

PATIENT
  Sex: Female

DRUGS (1)
  1. AMIODARONE HCL [Suspect]
     Dosage: 200 MG DAILY

REACTIONS (4)
  - HEPATIC ENCEPHALOPATHY [None]
  - PULMONARY TOXICITY [None]
  - PYREXIA [None]
  - SEPSIS [None]
